FAERS Safety Report 15896381 (Version 1)
Quarter: 2019Q1

REPORT INFORMATION
  Report Type: Spontaneous
  Country: US (occurrence: US)
  Receive Date: 20190131
  Receipt Date: 20190131
  Transmission Date: 20190417
  Serious: Yes (Hospitalization, Disabling, Other)
  Sender: FDA-Public Use
  Company Number: PHHY2019US018577

PATIENT
  Age: 43 Year
  Sex: Female

DRUGS (2)
  1. ENOXAPARIN [Concomitant]
     Active Substance: ENOXAPARIN
     Indication: DEEP VEIN THROMBOSIS
     Dosage: UNK UKN, UNK
     Route: 065
  2. LEVOFLOXACIN. [Suspect]
     Active Substance: LEVOFLOXACIN
     Indication: EAR INFECTION
     Dosage: 500 MG, BID (12 COURSE)
     Route: 048

REACTIONS (13)
  - Condition aggravated [Unknown]
  - Pain [Recovering/Resolving]
  - Depression [Unknown]
  - Complex regional pain syndrome [Unknown]
  - Anxiety [Unknown]
  - Muscle spasms [Unknown]
  - Dyskinesia [Unknown]
  - Swelling [Recovering/Resolving]
  - Allodynia [Recovering/Resolving]
  - Musculoskeletal stiffness [Unknown]
  - Paresis [Recovering/Resolving]
  - Neurotoxicity [Unknown]
  - Skin discolouration [Recovering/Resolving]
